FAERS Safety Report 9235751 (Version 2)
Quarter: 2013Q2

REPORT INFORMATION
  Report Type: Spontaneous
  Country: US (occurrence: US)
  Receive Date: 20130417
  Receipt Date: 20130517
  Transmission Date: 20140414
  Serious: Yes (Life-Threatening, Disabling, Other)
  Sender: FDA-Public Use
  Company Number: US-BAYER-2013-048247

PATIENT
  Age: 39 Year
  Sex: Female

DRUGS (12)
  1. OCELLA [Suspect]
     Indication: MENSTRUAL CYCLE MANAGEMENT
  2. YAZ [Suspect]
  3. YASMIN [Suspect]
  4. BEYAZ [Suspect]
  5. GIANVI [Suspect]
  6. METFORMIN [Concomitant]
     Route: 048
  7. LISINOPRIL [Concomitant]
     Route: 048
  8. SPIRONOLACTONE [Concomitant]
     Route: 048
  9. LEVOTHYROXIN [Concomitant]
     Route: 048
  10. RANITIDINE [Concomitant]
     Route: 048
  11. MOTRIN [Concomitant]
  12. VICODIN [Concomitant]

REACTIONS (9)
  - Deep vein thrombosis [None]
  - Thrombophlebitis superficial [Recovering/Resolving]
  - Pain [Recovering/Resolving]
  - General physical health deterioration [Recovering/Resolving]
  - Anxiety [None]
  - Anhedonia [Recovering/Resolving]
  - Injury [Recovering/Resolving]
  - Emotional distress [None]
  - Pain [None]
